FAERS Safety Report 12724709 (Version 1)
Quarter: 2016Q3

REPORT INFORMATION
  Report Type: Report from Study
  Country: MX (occurrence: MX)
  Receive Date: 20160908
  Receipt Date: 20160908
  Transmission Date: 20161109
  Serious: Yes (Death, Other)
  Sender: FDA-Public Use
  Company Number: PHHY2016MX123662

PATIENT
  Sex: Female

DRUGS (1)
  1. STALEVO [Suspect]
     Active Substance: CARBIDOPA\ENTACAPONE\LEVODOPA
     Indication: PRODUCT USED FOR UNKNOWN INDICATION
     Dosage: 1 DF (LEVODOPA 150 MG /CARBIDOPA 37.5 MG /ENTACAPONE 200 MG), UNK
     Route: 065

REACTIONS (4)
  - Oxygen saturation decreased [Fatal]
  - Breast cyst [Unknown]
  - Cough [Unknown]
  - Fungal infection [Unknown]
